FAERS Safety Report 15866178 (Version 5)
Quarter: 2021Q2

REPORT INFORMATION
  Report Type: Other
  Country: FR (occurrence: FR)
  Receive Date: 20190125
  Receipt Date: 20210602
  Transmission Date: 20210716
  Serious: Yes (Other)
  Sender: FDA-Public Use
  Company Number: FR-CELLTRION INC.-2018FR018919

PATIENT

DRUGS (37)
  1. RITUXIMAB (UNKNOWN) [Suspect]
     Active Substance: RITUXIMAB
     Dosage: UNK
     Route: 048
     Dates: start: 2013
  2. RITUXIMAB (UNKNOWN) [Suspect]
     Active Substance: RITUXIMAB
     Dosage: (DOSAGE FORM: UNSPECIFIED)
     Route: 048
     Dates: start: 2014
  3. IMBRUVICA [Suspect]
     Active Substance: IBRUTINIB
     Dosage: START PERIOD: 1095 DAYS
     Route: 048
     Dates: start: 201711, end: 201711
  4. IDELALISIB [Suspect]
     Active Substance: IDELALISIB
     Dosage: UNK
     Route: 065
  5. RITUXIMAB (UNKNOWN) [Suspect]
     Active Substance: RITUXIMAB
     Indication: CHRONIC LYMPHOCYTIC LEUKAEMIA
     Dosage: DOSAGE FORM: UNSPECIFIED
     Route: 048
     Dates: start: 2013
  6. ZYDELIG [Suspect]
     Active Substance: IDELALISIB
     Indication: CHRONIC LYMPHOCYTIC LEUKAEMIA
     Dosage: UNK
     Route: 065
  7. IMBRUVICA [Suspect]
     Active Substance: IBRUTINIB
     Dosage: UNK
     Route: 048
     Dates: start: 201403, end: 2014
  8. IMBRUVICA [Suspect]
     Active Substance: IBRUTINIB
     Dosage: ADDITIONAL INFO: START PERIOD: 1095 DAYS
     Route: 048
     Dates: start: 201411
  9. IMBRUVICA [Suspect]
     Active Substance: IBRUTINIB
     Dosage: ADDITIONAL INFO: START PERIOD: 1095 DAYS
     Route: 048
     Dates: start: 201411
  10. IMBRUVICA [Suspect]
     Active Substance: IBRUTINIB
     Dosage: START PERIOD: 1095 DAYS
     Route: 048
     Dates: start: 201711, end: 201711
  11. VENETOCLAX. [Suspect]
     Active Substance: VENETOCLAX
     Indication: CHRONIC LYMPHOCYTIC LEUKAEMIA
     Dosage: UNK
     Route: 048
     Dates: start: 201608
  12. IDELALISIB [Suspect]
     Active Substance: IDELALISIB
     Indication: CHRONIC LYMPHOCYTIC LEUKAEMIA
     Dosage: UNK
     Route: 065
  13. NIVOLUMAB [Suspect]
     Active Substance: NIVOLUMAB
     Dosage: DOSAGE FORM: UNSPECIFIED
     Route: 065
     Dates: start: 201707
  14. NIVOLUMAB [Suspect]
     Active Substance: NIVOLUMAB
     Dosage: DOSAGE FORM: UNSPECIFIED
     Route: 065
     Dates: start: 201707
  15. IMBRUVICA [Suspect]
     Active Substance: IBRUTINIB
     Dosage: UNK
     Route: 048
     Dates: start: 201403, end: 2014
  16. IDELALISIB [Suspect]
     Active Substance: IDELALISIB
     Dosage: UNK
     Route: 065
  17. RITUXIMAB (UNKNOWN) [Suspect]
     Active Substance: RITUXIMAB
     Dosage: (DOSAGE FORM: UNSPECIFIED)
     Route: 048
     Dates: start: 2014
  18. NIVOLUMAB [Suspect]
     Active Substance: NIVOLUMAB
     Dosage: DOSAGE FORM: UNSPECIFIED
     Route: 065
     Dates: start: 201707
  19. METHOTREXATE. [Suspect]
     Active Substance: METHOTREXATE
     Dosage: DOSAGE FORM: UNSPECIFIED
     Route: 065
  20. IMBRUVICA [Suspect]
     Active Substance: IBRUTINIB
     Dosage: UNK
     Route: 048
     Dates: start: 201403, end: 2014
  21. NIVOLUMAB [Suspect]
     Active Substance: NIVOLUMAB
     Indication: CHRONIC LYMPHOCYTIC LEUKAEMIA
     Dosage: DOSAGE FORM: UNSPECIFIED
     Route: 065
     Dates: start: 201707
  22. NIVOLUMAB [Suspect]
     Active Substance: NIVOLUMAB
     Dosage: DOSAGE FORM: UNSPECIFIED
     Route: 065
     Dates: start: 201707
  23. METHOTREXATE. [Suspect]
     Active Substance: METHOTREXATE
     Dosage: DOSAGE FORM: UNSPECIFIED
     Route: 065
  24. METHOTREXATE. [Suspect]
     Active Substance: METHOTREXATE
     Dosage: UNK
     Route: 065
  25. IMBRUVICA [Suspect]
     Active Substance: IBRUTINIB
     Indication: CHRONIC LYMPHOCYTIC LEUKAEMIA
     Dosage: UNK
     Route: 048
     Dates: start: 201403, end: 2014
  26. IBRUTINIB [Suspect]
     Active Substance: IBRUTINIB
     Dosage: UNK
     Route: 048
     Dates: start: 201711, end: 201711
  27. NIVOLUMAB [Suspect]
     Active Substance: NIVOLUMAB
     Dosage: DOAGE FORM: INFUSION
     Route: 065
     Dates: start: 201707
  28. METHOTREXATE. [Suspect]
     Active Substance: METHOTREXATE
     Dosage: DOSAGE FORM: UNSPECIFIED
     Route: 065
  29. IMBRUVICA [Suspect]
     Active Substance: IBRUTINIB
     Dosage: ADDITIONAL INFO: START PERIOD: 1095 DAYS
     Route: 048
     Dates: start: 201411
  30. BENDAMUSTINE HYDROCHLORIDE. [Suspect]
     Active Substance: BENDAMUSTINE HYDROCHLORIDE
     Indication: CHRONIC LYMPHOCYTIC LEUKAEMIA
     Dosage: UNK UNK, CYCLIC
     Route: 042
     Dates: start: 201608
  31. IMBRUVICA [Suspect]
     Active Substance: IBRUTINIB
     Dosage: ADDITIONAL INFO: START PERIOD: 1095 DAYS
     Route: 048
     Dates: start: 201411
  32. IBRUTINIB [Suspect]
     Active Substance: IBRUTINIB
     Indication: CHRONIC LYMPHOCYTIC LEUKAEMIA
     Dosage: UNK
     Route: 048
     Dates: start: 201403
  33. RITUXIMAB (UNKNOWN) [Suspect]
     Active Substance: RITUXIMAB
     Dosage: UNK
     Route: 048
     Dates: start: 201608
  34. METHOTREXATE. [Suspect]
     Active Substance: METHOTREXATE
     Indication: CHRONIC LYMPHOCYTIC LEUKAEMIA
     Dosage: DOSAGE FORM: UNSPECIFIED
     Route: 065
  35. IMBRUVICA [Suspect]
     Active Substance: IBRUTINIB
     Dosage: START PERIOD: 1095 DAYS
     Route: 048
     Dates: start: 201711, end: 201711
  36. IMBRUVICA [Suspect]
     Active Substance: IBRUTINIB
     Dosage: START PERIOD: 1095 DAYS
     Route: 048
     Dates: start: 201711, end: 201711
  37. VENETOCLAX. [Suspect]
     Active Substance: VENETOCLAX
     Dosage: UNK
     Route: 048

REACTIONS (4)
  - Incorrect route of product administration [Unknown]
  - Nonspecific reaction [Unknown]
  - Chronic lymphocytic leukaemia [Unknown]
  - Non-small cell lung cancer [Unknown]

NARRATIVE: CASE EVENT DATE: 201608
